FAERS Safety Report 6398896-X (Version None)
Quarter: 2009Q4

REPORT INFORMATION
  Report Type: 
  Country: None (occurrence: None)
  Receive Date: 20091013
  Receipt Date: 20091001
  Transmission Date: 20100525
  Serious: Yes (Hospitalization)
  Sender: FDA-Public Use
  Company Number: PHHY2009VE42532

PATIENT
  Sex: Female

DRUGS (3)
  1. ACLASTA [Suspect]
     Indication: OSTEOPENIA
     Dosage: 5 MG/YEAR
     Route: 042
     Dates: start: 20090601
  2. CALCIUM [Concomitant]
     Dosage: ONCE A DAY
  3. GLUCOSAMINE W/CHONDROITIN [Concomitant]
     Dosage: ONCE A DAY

REACTIONS (7)
  - INGUINAL HERNIA [None]
  - INGUINAL HERNIA REPAIR [None]
  - JOINT SWELLING [None]
  - OEDEMA PERIPHERAL [None]
  - PAIN [None]
  - UMBILICAL HERNIA [None]
  - UMBILICAL HERNIA REPAIR [None]
